FAERS Safety Report 8832353 (Version 2)
Quarter: 2013Q2

REPORT INFORMATION
  Report Type: Spontaneous
  Country: US (occurrence: US)
  Receive Date: 20121009
  Receipt Date: 20130423
  Transmission Date: 20140414
  Serious: Yes (Other)
  Sender: FDA-Public Use
  Company Number: US-009507513-1210USA000346

PATIENT
  Age: 58 Year
  Sex: Female
  Weight: 52.15 kg

DRUGS (12)
  1. PEGINTRON [Suspect]
     Dosage: 80 MICROGRAM/0.5ML, QW
     Route: 058
     Dates: start: 20120824, end: 20121203
  2. TELAPREVIR [Suspect]
  3. RIBASPHERE [Suspect]
  4. HYDROXYZINE [Concomitant]
  5. VALACYCLOVIR HYDROCHLORIDE [Concomitant]
  6. TRAZODONE HYDROCHLORIDE [Concomitant]
  7. LEVOTHYROXINE SODIUM [Concomitant]
  8. LEXAPRO [Concomitant]
  9. METHYLTESTOSTERONE (ESTROGENS, CONJUGATED (+) METHYLTESTOSTERONE) [Concomitant]
  10. MEDROXYPROGESTERONE ACETATE [Concomitant]
  11. OMEGA-3 MARINE TRIGLYCERIDES [Concomitant]
  12. CALCIUM (UNSPECIFIED) (+) VITAMIN D (UNSPECIFIED) [Concomitant]

REACTIONS (4)
  - Diarrhoea [Recovered/Resolved]
  - Rash [Recovered/Resolved]
  - Depression [Recovered/Resolved]
  - Anal pruritus [Not Recovered/Not Resolved]
